FAERS Safety Report 20549198 (Version 2)
Quarter: 2022Q2

REPORT INFORMATION
  Report Type: Report from Study
  Country: US (occurrence: US)
  Receive Date: 20220303
  Receipt Date: 20220428
  Transmission Date: 20220720
  Serious: Yes (Death, Hospitalization, Disabling)
  Sender: FDA-Public Use
  Company Number: US-UCBSA-2022009957

PATIENT
  Age: 71 Year
  Sex: Male

DRUGS (1)
  1. ROTIGOTINE [Suspect]
     Active Substance: ROTIGOTINE
     Indication: Parkinson^s disease
     Dosage: 8MG 1 PATCH DAILY
     Dates: end: 20211220

REACTIONS (4)
  - Haemorrhagic stroke [Fatal]
  - Immobilisation prolonged [Unknown]
  - Feeding disorder [Unknown]
  - Sleep deficit [Unknown]

NARRATIVE: CASE EVENT DATE: 20211207
